FAERS Safety Report 9995360 (Version 1)
Quarter: 2014Q1

REPORT INFORMATION
  Report Type: Spontaneous
  Country: US (occurrence: None)
  Receive Date: 20140214
  Receipt Date: 20140214
  Transmission Date: 20141002
  Serious: Yes (Other)
  Sender: FDA-Public Use
  Company Number: US-013543

PATIENT
  Age: 61 Year
  Sex: Female
  Weight: 56.7 kg

DRUGS (1)
  1. PICOLAX /00755101/ (NOT SPECIFIED) [Suspect]
     Indication: BOWEL PREPARATION
     Dosage: FIRST PACKET AT 6:00PM
     Route: 048
     Dates: start: 20131104, end: 20131104

REACTIONS (1)
  - Drug ineffective [None]
